FAERS Safety Report 7209020-5 (Version None)
Quarter: 2011Q1

REPORT INFORMATION
  Report Type: 
  Country: None (occurrence: None)
  Receive Date: 20110104
  Receipt Date: 20101229
  Transmission Date: 20110831
  Serious: Yes (Other)
  Sender: FDA-Public Use
  Company Number: US-PFIZER INC-2010039993

PATIENT
  Sex: Female
  Weight: 137 kg

DRUGS (6)
  1. LISINOPRIL [Concomitant]
     Indication: HYPERTENSION
     Dosage: UNK
  2. SYNTHROID [Concomitant]
     Dosage: UNK
  3. ATENOLOL [Concomitant]
     Indication: HYPERTENSION
     Dosage: UNK
  4. CLONIDINE [Concomitant]
     Indication: HYPERTENSION
     Dosage: UNK
  5. CHANTIX [Suspect]
     Indication: SMOKING CESSATION THERAPY
     Dosage: UNK
     Route: 048
     Dates: start: 20100319
  6. NEURONTIN [Concomitant]
     Dosage: UNK

REACTIONS (4)
  - STRESS [None]
  - FEELING JITTERY [None]
  - DEPRESSED MOOD [None]
  - EMOTIONAL DISORDER [None]
